FAERS Safety Report 13426717 (Version 2)
Quarter: 2017Q2

REPORT INFORMATION
  Report Type: Spontaneous
  Country: GB (occurrence: GB)
  Receive Date: 20170411
  Receipt Date: 20170419
  Transmission Date: 20170830
  Serious: Yes (Other)
  Sender: FDA-Public Use
  Company Number: GB-CONCORDIA PHARMACEUTICALS INC.-GSH201704-002275

PATIENT
  Age: 50 Year
  Sex: Male

DRUGS (1)
  1. PREDNISOLONE. [Suspect]
     Active Substance: PREDNISOLONE

REACTIONS (4)
  - Acute kidney injury [Recovered/Resolved]
  - Hypoalbuminaemia [Recovered/Resolved]
  - Proteinuria [Recovered/Resolved]
  - Hypercholesterolaemia [Recovered/Resolved]
